FAERS Safety Report 26069128 (Version 1)
Quarter: 2025Q4

REPORT INFORMATION
  Report Type: Spontaneous
  Country: US (occurrence: None)
  Receive Date: 20251119
  Receipt Date: 20251119
  Transmission Date: 20260117
  Serious: Yes (Hospitalization)
  Sender: FDA-CTU
  Company Number: None

PATIENT
  Age: 65 Year
  Sex: Male

DRUGS (3)
  1. VUMERITY [Suspect]
     Active Substance: DIROXIMEL FUMARATE
     Indication: Product used for unknown indication
     Dosage: 462MG BID ORAL ?
     Route: 048
  2. DALFAMPRIDINE [Suspect]
     Active Substance: DALFAMPRIDINE
  3. KEPPRA [Suspect]
     Active Substance: LEVETIRACETAM

REACTIONS (6)
  - Seizure [None]
  - Muscular weakness [None]
  - Asthenia [None]
  - Gait disturbance [None]
  - Fatigue [None]
  - Memory impairment [None]
